FAERS Safety Report 21605326 (Version 1)
Quarter: 2022Q4

REPORT INFORMATION
  Report Type: Report from Study
  Country: IT (occurrence: IT)
  Receive Date: 20221116
  Receipt Date: 20221116
  Transmission Date: 20230112
  Serious: Yes (Hospitalization, Other)
  Sender: FDA-Public Use
  Company Number: None

PATIENT
  Age: 66 Year
  Sex: Male

DRUGS (1)
  1. PRADAXA [Suspect]
     Active Substance: DABIGATRAN ETEXILATE MESYLATE
     Indication: Ischaemic cardiomyopathy
     Route: 048
     Dates: start: 20220917, end: 20221017

REACTIONS (5)
  - Anticoagulation drug level above therapeutic [Recovering/Resolving]
  - Bradycardia [Recovering/Resolving]
  - Diarrhoea [Recovering/Resolving]
  - Acute kidney injury [Recovering/Resolving]
  - Hypotension [Recovering/Resolving]

NARRATIVE: CASE EVENT DATE: 20221017
